FAERS Safety Report 4952234-5 (Version None)
Quarter: 2006Q1

REPORT INFORMATION
  Report Type: 
  Country: None (occurrence: None)
  Receive Date: 20060323
  Receipt Date: 20060313
  Transmission Date: 20060701
  Serious: Yes (Life-Threatening, Hospitalization)
  Sender: FDA-Public Use
  Company Number: FR-BRISTOL-MYERS SQUIBB COMPANY-13314489

PATIENT
  Age: 55 Year
  Sex: Male
  Weight: 77 kg

DRUGS (4)
  1. MODECATE INJ [Suspect]
     Indication: SCHIZOPHRENIA
     Route: 048
     Dates: start: 20060105, end: 20060105
  2. PARKINANE [Concomitant]
     Route: 048
  3. XANAX [Concomitant]
     Route: 048
  4. TERCIAN [Concomitant]
     Indication: SCHIZOPHRENIA
     Route: 048

REACTIONS (7)
  - CARDIAC ARREST [None]
  - DEHYDRATION [None]
  - GLASGOW COMA SCALE ABNORMAL [None]
  - MALAISE [None]
  - RENAL FAILURE ACUTE [None]
  - RESPIRATORY ARREST [None]
  - RHABDOMYOLYSIS [None]
